FAERS Safety Report 5004214-1 (Version None)
Quarter: 2006Q2

REPORT INFORMATION
  Report Type: 
  Country: None (occurrence: None)
  Receive Date: 20060517
  Receipt Date: 20060419
  Transmission Date: 20061013
  Serious: Yes (Hospitalization, Disabling, Other)
  Sender: FDA-Public Use
  Company Number: JP-ABBOTT-06P-087-0331225-00

PATIENT
  Sex: Female

DRUGS (14)
  1. KALETRA [Suspect]
     Indication: HIV INFECTION
     Route: 048
     Dates: start: 20041025, end: 20050908
  2. STAVUDINE [Suspect]
     Indication: HIV INFECTION
     Route: 048
     Dates: start: 20041025, end: 20051113
  3. LAMIVUDINE [Suspect]
     Indication: HIV INFECTION
     Route: 048
     Dates: start: 20041025, end: 20051113
  4. RIFABUTIN [Suspect]
     Indication: MYCOBACTERIUM AVIUM COMPLEX INFECTION
     Dosage: NOT REPORTED
  5. RIFABUTIN [Suspect]
     Route: 048
     Dates: start: 20040825, end: 20050313
  6. RIFABUTIN [Suspect]
     Route: 048
     Dates: start: 20050922, end: 20051001
  7. RIFABUTIN [Suspect]
     Route: 048
     Dates: start: 20051021
  8. AZITHROMYCIN [Concomitant]
     Indication: MYCOBACTERIUM AVIUM COMPLEX INFECTION
     Dates: start: 20040825, end: 20050713
  9. ETHANBUTOL [Concomitant]
     Indication: MYCOBACTERIUM AVIUM COMPLEX INFECTION
     Dates: start: 20040825
  10. CIPROFLOXACIN [Concomitant]
     Indication: MYCOBACTERIUM AVIUM COMPLEX INFECTION
     Route: 048
     Dates: start: 20040825, end: 20041120
  11. EFAVIRENZ [Concomitant]
     Indication: HIV INFECTION
     Route: 048
     Dates: start: 20050909
  12. EMTRICITABIN/TENOFOVIR [Concomitant]
     Indication: HIV INFECTION
     Route: 048
     Dates: start: 20051114
  13. LEVOFLOXACIN [Concomitant]
     Indication: MYCOBACTERIUM AVIUM COMPLEX INFECTION
     Dates: start: 20041121, end: 20050713
  14. FLUCONAZOLE [Concomitant]
     Indication: OESOPHAGEAL CANDIDIASIS
     Route: 048
     Dates: start: 20040817, end: 20050711

REACTIONS (2)
  - IMMUNE RECONSTITUTION SYNDROME [None]
  - UVEITIS [None]
